FAERS Safety Report 4723195-9 (Version None)
Quarter: 2005Q3

REPORT INFORMATION
  Report Type: 
  Country: None (occurrence: None)
  Receive Date: 20050722
  Receipt Date: 20050713
  Transmission Date: 20060218
  Serious: Yes (Death)
  Sender: FDA-Public Use
  Company Number: CA-ABBOTT-05P-028-0305924-00

PATIENT
  Sex: Male
  Weight: 55 kg

DRUGS (3)
  1. EPIVAL TABLETS [Suspect]
     Indication: CONVULSION
     Route: 048
  2. CLOBAZAM [Concomitant]
     Indication: CHROMOSOME ABNORMALITY
  3. ACETAMINOPHEN W/ CODEINE [Concomitant]
     Indication: DENTAL OPERATION

REACTIONS (5)
  - CARDIO-RESPIRATORY ARREST [None]
  - CONFUSIONAL STATE [None]
  - NARCOTIC INTOXICATION [None]
  - PNEUMONIA ASPIRATION [None]
  - SOMNOLENCE [None]
